FAERS Safety Report 20326404 (Version 8)
Quarter: 2022Q2

REPORT INFORMATION
  Report Type: Spontaneous
  Country: JP (occurrence: JP)
  Receive Date: 20220112
  Receipt Date: 20220427
  Transmission Date: 20220721
  Serious: Yes (Hospitalization, Other)
  Sender: FDA-Public Use
  Company Number: JP-ASTELLAS-2021JP025214

PATIENT
  Age: 80 Year
  Sex: Male
  Weight: 63 kg

DRUGS (3)
  1. PADCEV [Suspect]
     Active Substance: ENFORTUMAB VEDOTIN-EJFV
     Indication: Bladder cancer
     Dosage: 1.25 MG/KG, 73.75 MG,DAY, UNKNOWN FREQ.
     Route: 041
     Dates: start: 20211222, end: 20220105
  2. KEYTRUDA [Suspect]
     Active Substance: PEMBROLIZUMAB
     Indication: Product used for unknown indication
     Dosage: UNK UNK, UNKNOWN FREQ.
     Route: 065
  3. RINDERON VG [Concomitant]
     Active Substance: BETAMETHASONE VALERATE\GENTAMICIN SULFATE
     Indication: Pruritus
     Dosage: UNK UNK, UNKNOWN FREQ.
     Route: 065
     Dates: start: 20211229

REACTIONS (4)
  - Pruritus [Not Recovered/Not Resolved]
  - Haematuria [Recovered/Resolved]
  - Liver disorder [Not Recovered/Not Resolved]
  - Inappropriate schedule of product administration [Unknown]

NARRATIVE: CASE EVENT DATE: 20211225
